FAERS Safety Report 9099076 (Version 1)
Quarter: 2013Q1

REPORT INFORMATION
  Report Type: Spontaneous
  Country: KR (occurrence: KR)
  Receive Date: 20130214
  Receipt Date: 20130214
  Transmission Date: 20140127
  Serious: Yes (Other)
  Sender: FDA-Public Use
  Company Number: KR-ELI_LILLY_AND_COMPANY-KR201301009512

PATIENT
  Age: 58 Year
  Sex: Male

DRUGS (3)
  1. HUMALOG 25% LISPRO, 75% NPL [Suspect]
     Indication: TYPE 2 DIABETES MELLITUS
     Dosage: 12 U, EACH MORNING
     Route: 058
     Dates: start: 20121217
  2. HUMALOG 25% LISPRO, 75% NPL [Suspect]
     Dosage: 5 U, QD
     Route: 058
     Dates: start: 20121217
  3. HUMALOG 25% LISPRO, 75% NPL [Suspect]
     Dosage: 7 U, EACH EVENING
     Route: 058
     Dates: start: 20121217

REACTIONS (1)
  - Intestinal stenosis [Recovering/Resolving]
